FAERS Safety Report 6604309-2 (Version None)
Quarter: 2010Q1

REPORT INFORMATION
  Report Type: 
  Country: None (occurrence: None)
  Receive Date: 20100226
  Receipt Date: 20090807
  Transmission Date: 20100710
  Serious: No
  Sender: FDA-Public Use
  Company Number: A0802156A

PATIENT
  Age: 39 Year
  Sex: Female
  Weight: 77.3 kg

DRUGS (2)
  1. LAMICTAL CD [Suspect]
     Indication: BIPOLAR DISORDER
     Dosage: 50MG UNKNOWN
     Route: 048
     Dates: start: 20061001
  2. UNKNOWN [Concomitant]

REACTIONS (6)
  - ACTIVITIES OF DAILY LIVING IMPAIRED [None]
  - CRYING [None]
  - FATIGUE [None]
  - IRRITABILITY [None]
  - MENTAL IMPAIRMENT [None]
  - TREATMENT NONCOMPLIANCE [None]
